FAERS Safety Report 6457299-X (Version None)
Quarter: 2009Q4

REPORT INFORMATION
  Report Type: 
  Country: None (occurrence: None)
  Receive Date: 20091125
  Receipt Date: 20090916
  Transmission Date: 20100525
  Serious: Yes (Other)
  Sender: FDA-Public Use
  Company Number: BR-PFIZER INC-2009269777

PATIENT
  Age: 39 Year
  Sex: Female
  Weight: 80 kg

DRUGS (4)
  1. DEPO-PROVERA [Suspect]
     Indication: OFF LABEL USE
     Dosage: 150 MG, EVERY 3 MONTHS
     Route: 030
     Dates: start: 20090101, end: 20090101
  2. DEPO-PROVERA [Suspect]
     Indication: MENSTRUAL DISCOMFORT
  3. DEPO-PROVERA [Suspect]
     Indication: DYSMENORRHOEA
  4. DEPO-PROVERA [Suspect]
     Indication: UTERINE ENLARGEMENT

REACTIONS (4)
  - OEDEMA PERIPHERAL [None]
  - PERIPHERAL VASCULAR DISORDER [None]
  - PRURITUS [None]
  - SKIN ULCER [None]
